FAERS Safety Report 8406384-1 (Version None)
Quarter: 2012Q2

REPORT INFORMATION
  Report Type: 
  Country: None (occurrence: None)
  Receive Date: 20120604
  Receipt Date: 20120531
  Transmission Date: 20120825
  Serious: Yes (Death)
  Sender: FDA-Public Use
  Company Number: PHEH2012US011153

PATIENT
  Sex: Male

DRUGS (1)
  1. NEORAL [Suspect]
     Dosage: 25 MG + 100 MG,  3 CAPSULES PER MONTH
     Route: 048
     Dates: start: 20051221, end: 20120416

REACTIONS (1)
  - DEATH [None]
